FAERS Safety Report 24166319 (Version 2)
Quarter: 2024Q3

REPORT INFORMATION
  Report Type: Spontaneous
  Country: US (occurrence: US)
  Receive Date: 20240802
  Receipt Date: 20240813
  Transmission Date: 20241017
  Serious: No
  Sender: ABBVIE
  Company Number: US-ABBVIE-5861000

PATIENT
  Age: 50 Year
  Sex: Female

DRUGS (2)
  1. DALVANCE [Suspect]
     Active Substance: DALBAVANCIN
     Indication: Corynebacterium infection
     Dosage: 500 MG EVERY 1 WEEK, FOUR DOSES, ACTUAL DOSE: 1 GRAM
     Route: 065
     Dates: start: 2024
  2. DALVANCE [Suspect]
     Active Substance: DALBAVANCIN
     Indication: Corynebacterium infection
     Dosage: TIME INTERVAL: AS NECESSARY
     Route: 065
     Dates: start: 20240624

REACTIONS (2)
  - Off label use [Unknown]
  - C-reactive protein increased [Unknown]

NARRATIVE: CASE EVENT DATE: 20240729
